FAERS Safety Report 8933930 (Version 1)
Quarter: 2012Q4

REPORT INFORMATION
  Report Type: 
  Country: VN (occurrence: VN)
  Receive Date: 20121129
  Receipt Date: 20121129
  Transmission Date: 20130627
  Serious: Yes (Death, Hospitalization)
  Sender: FDA-Public Use
  Company Number: VN-BAXTER-2012BAX025138

PATIENT
  Sex: Male

DRUGS (2)
  1. DIANEAL LOW CALCIUM (2,5MEQ.L) PERITIONEAL DIALYSIS SOLUTION WITH 1.5% [Suspect]
     Indication: CONTINUOUS AMBULATORY PERITONEAL DIALYSIS
     Route: 033
     Dates: start: 20120709
  2. DIANEAL LOW CALCIUM (2,5MEQ.L) PERITIONEAL DIALYSIS SOLUTION WITH 2.5% [Suspect]
     Indication: CONTINUOUS AMBULATORY PERITONEAL DIALYSIS
     Route: 033
     Dates: start: 20120709

REACTIONS (5)
  - Death [Fatal]
  - Respiratory failure [Unknown]
  - Tuberculosis [Unknown]
  - Pneumonia [Unknown]
  - Disease complication [Unknown]
